FAERS Safety Report 5014484-1 (Version None)
Quarter: 2006Q2

REPORT INFORMATION
  Report Type: 
  Country: None (occurrence: None)
  Receive Date: 20060531
  Receipt Date: 20060519
  Transmission Date: 20061013
  Serious: Yes (Hospitalization)
  Sender: FDA-Public Use
  Company Number: US-JNJFOC-20060505571

PATIENT
  Sex: Female
  Weight: 58.97 kg

DRUGS (12)
  1. DURAGESIC-100 [Suspect]
     Route: 062
  2. ULTRAM [Concomitant]
     Indication: DRUG USE FOR UNKNOWN INDICATION
     Route: 065
  3. ROXICODONE [Concomitant]
     Route: 065
  4. PLAVIX [Concomitant]
  5. LANOXIN [Concomitant]
  6. PREDNISONE [Concomitant]
  7. PRILOSEC [Concomitant]
  8. CLARINEX [Concomitant]
  9. LASIX [Concomitant]
     Dosage: 40 MG EVERY OTHER DAY
  10. AMBIEN [Concomitant]
  11. COUMADIN [Concomitant]
  12. LACTULOSE [Concomitant]

REACTIONS (6)
  - ABDOMINAL PAIN UPPER [None]
  - CORONARY ARTERY DISEASE [None]
  - DEEP VEIN THROMBOSIS [None]
  - ERYTHEMA [None]
  - PAIN IN EXTREMITY [None]
  - WEIGHT DECREASED [None]
